FAERS Safety Report 7437736-4 (Version None)
Quarter: 2011Q2

REPORT INFORMATION
  Report Type: 
  Country: None (occurrence: None)
  Receive Date: 20110426
  Receipt Date: 20110413
  Transmission Date: 20111010
  Serious: Yes (Other)
  Sender: FDA-Public Use
  Company Number: AU-ROCHE-755015

PATIENT
  Age: 26 Year
  Sex: Male

DRUGS (4)
  1. MYCOPHENOLATE MOFETIL [Suspect]
     Indication: IMMUNOSUPPRESSION
     Route: 065
  2. TACROLIMUS [Suspect]
     Indication: IMMUNOSUPPRESSION
     Route: 065
  3. METHYLPREDNISOLONE [Concomitant]
  4. DEXAMETHASONE [Suspect]
     Indication: IMMUNOSUPPRESSION
     Route: 065

REACTIONS (2)
  - CANDIDIASIS [None]
  - POSTERIOR REVERSIBLE ENCEPHALOPATHY SYNDROME [None]
